FAERS Safety Report 12588663 (Version 1)
Quarter: 2016Q3

REPORT INFORMATION
  Report Type: Spontaneous
  Country: US (occurrence: US)
  Receive Date: 20160725
  Receipt Date: 20160725
  Transmission Date: 20161109
  Serious: No
  Sender: FDA-Public Use
  Company Number: US-JNJFOC-20160606326

PATIENT

DRUGS (2)
  1. VISINE (UNSPECIFIED) [Suspect]
     Active Substance: TETRAHYDROZOLINE HYDROCHLORIDE
     Indication: OCULAR HYPERAEMIA
     Dosage: DAILY
     Route: 047
  2. VISINE (UNSPECIFIED) [Suspect]
     Active Substance: TETRAHYDROZOLINE HYDROCHLORIDE
     Indication: EYE IRRITATION
     Dosage: DAILY
     Route: 047

REACTIONS (1)
  - Drug effect incomplete [Unknown]
